FAERS Safety Report 9034024 (Version 1)
Quarter: 2013Q1

REPORT INFORMATION
  Report Type: Spontaneous
  Country: US (occurrence: None)
  Receive Date: 20130116
  Receipt Date: 20130116
  Transmission Date: 20140127
  Serious: No
  Sender: FDA-Public Use
  Company Number: None

PATIENT
  Sex: Female

DRUGS (1)
  1. COPAXONE [Suspect]
     Indication: MULTIPLE SCLEROSIS
     Dosage: 20MG QD SUBCUTANEOUS
     Route: 058
     Dates: start: 20121219, end: 20130114

REACTIONS (5)
  - Injection site swelling [None]
  - Injection site induration [None]
  - Injection site discolouration [None]
  - Injection site pruritus [None]
  - Injection site irritation [None]
